FAERS Safety Report 9518454 (Version 1)
Quarter: 2013Q3

REPORT INFORMATION
  Report Type: Spontaneous
  Country: BR (occurrence: BR)
  Receive Date: 20130912
  Receipt Date: 20130912
  Transmission Date: 20140515
  Serious: Yes (Congenital Anomaly, Other)
  Sender: FDA-Public Use
  Company Number: BR-AMGEN-BRASP2013063614

PATIENT
  Age: 54 Year
  Sex: Male
  Weight: 90 kg

DRUGS (2)
  1. ENBREL [Suspect]
     Indication: RHEUMATOID ARTHRITIS
     Dosage: 50 MG, ONCE WEEKLY
     Route: 058
     Dates: start: 201208
  2. METHOTREXATE [Concomitant]
     Indication: RHEUMATOID ARTHRITIS
     Dosage: 3 TABLETS IN THE MORNING AND 3 TABLETS AT NIGHT, ONCE WEEKLY (ON MONDAYS)
     Route: 065

REACTIONS (5)
  - Paralysis [Unknown]
  - Walking disability [Unknown]
  - Local swelling [Unknown]
  - Pruritus generalised [Unknown]
  - Drug ineffective [Unknown]
